FAERS Safety Report 10233051 (Version 1)
Quarter: 2014Q2

REPORT INFORMATION
  Report Type: Spontaneous
  Country: US (occurrence: None)
  Receive Date: 20140611
  Receipt Date: 20140611
  Transmission Date: 20141212
  Serious: Yes (Hospitalization)
  Sender: FDA-Public Use
  Company Number: None

PATIENT
  Age: 69 Year
  Sex: Male
  Weight: 113.4 kg

DRUGS (2)
  1. CEFTRIAXONE [Suspect]
     Route: 042
     Dates: start: 20140314, end: 20140316
  2. MOXIFLOXACIN [Suspect]
     Route: 048
     Dates: start: 20140316, end: 20140321

REACTIONS (5)
  - Blood creatinine increased [None]
  - Pyrexia [None]
  - Clostridium test positive [None]
  - Diarrhoea [None]
  - Disorientation [None]
